FAERS Safety Report 8259598-8 (Version None)
Quarter: 2012Q2

REPORT INFORMATION
  Report Type: 
  Country: None (occurrence: None)
  Receive Date: 20120404
  Receipt Date: 20120327
  Transmission Date: 20120825
  Serious: Yes (Death, Hospitalization, Other)
  Sender: FDA-Public Use
  Company Number: PHHY2012CH026452

PATIENT
  Age: 67 Year
  Sex: Female

DRUGS (5)
  1. RASILEZ [Suspect]
     Indication: HYPERTENSION
     Dosage: 150 MG/DAILY
     Dates: start: 20100301
  2. ENALAPRIL MALEATE [Concomitant]
     Indication: HYPERTENSION
     Dosage: 20 MG/DAILY
     Dates: end: 20110410
  3. GLUCOPHAGE [Concomitant]
     Indication: TYPE 2 DIABETES MELLITUS
  4. TORSEMIDE [Concomitant]
     Indication: HYPERTENSION
     Dates: end: 20110410
  5. TRANDATE [Concomitant]
     Indication: HYPERTENSION
     Dosage: 200 MG, 4 TIMES DAILY
     Dates: end: 20110410

REACTIONS (20)
  - LUNG DISORDER [None]
  - AGITATION [None]
  - MEMORY IMPAIRMENT [None]
  - TACHYPNOEA [None]
  - CARDIAC HYPERTROPHY [None]
  - CONFUSIONAL STATE [None]
  - URINARY TRACT INFECTION [None]
  - DEHYDRATION [None]
  - COGNITIVE DISORDER [None]
  - PSYCHOMOTOR RETARDATION [None]
  - CARDIAC MURMUR [None]
  - HYPERTENSION [None]
  - HAEMOGLOBIN ABNORMAL [None]
  - CARDIO-RESPIRATORY ARREST [None]
  - CARDIAC ARREST [None]
  - HYPOVENTILATION [None]
  - RIB DEFORMITY [None]
  - FALL [None]
  - RENAL FAILURE [None]
  - HAEMATOMA [None]
